FAERS Safety Report 13049533 (Version 2)
Quarter: 2017Q1

REPORT INFORMATION
  Report Type: Spontaneous
  Country: US (occurrence: US)
  Receive Date: 20161221
  Receipt Date: 20170126
  Transmission Date: 20170428
  Serious: Yes (Hospitalization)
  Sender: FDA-Public Use
  Company Number: US-VERTEX PHARMACEUTICALS-2016-007090

PATIENT
  Age: 19 Year
  Sex: Male
  Weight: 54 kg

DRUGS (13)
  1. CREON [Concomitant]
     Active Substance: PANCRELIPASE AMYLASE\PANCRELIPASE LIPASE\PANCRELIPASE PROTEASE
  2. DEPOTEST [Concomitant]
  3. FLONASE [Concomitant]
     Active Substance: FLUTICASONE PROPIONATE
  4. SYNTHROID [Concomitant]
     Active Substance: LEVOTHYROXINE SODIUM
  5. CORTEF [Concomitant]
     Active Substance: HYDROCORTISONE
  6. COMPLETE MVW [Concomitant]
  7. ORKAMBI [Suspect]
     Active Substance: IVACAFTOR\LUMACAFTOR
     Indication: CYSTIC FIBROSIS
     Dosage: 2 DF, BID
     Route: 048
     Dates: start: 20160113
  8. PULMOZYME [Concomitant]
     Active Substance: DORNASE ALFA
  9. DDAVP [Concomitant]
     Active Substance: DESMOPRESSIN ACETATE
  10. NOVOLOG [Concomitant]
     Active Substance: INSULIN ASPART
  11. ALBUTEROL. [Concomitant]
     Active Substance: ALBUTEROL
  12. OMNITROPE [Concomitant]
     Active Substance: SOMATROPIN
  13. HYPERTONIC SALINE SOLUTION [Concomitant]
     Active Substance: SODIUM CHLORIDE

REACTIONS (1)
  - Infective pulmonary exacerbation of cystic fibrosis [Recovered/Resolved]

NARRATIVE: CASE EVENT DATE: 20161115
